FAERS Safety Report 5670683-7 (Version None)
Quarter: 2008Q2

REPORT INFORMATION
  Report Type: 
  Country: None (occurrence: None)
  Receive Date: 20080305
  Receipt Date: 20070419
  Transmission Date: 20081010
  Serious: Yes (Hospitalization)
  Sender: FDA-Public Use
  Company Number: BDI-009365

PATIENT
  Sex: Male
  Weight: 90.9 kg

DRUGS (2)
  1. ISOVUE-300 [Suspect]
     Indication: COMPUTERISED TOMOGRAM ABDOMEN
     Dosage: 100ML ONCE INTRAVENOUS
     Route: 042
     Dates: start: 20070412, end: 20070412
  2. ISOVUE-300 [Suspect]
     Indication: CONSTIPATION
     Dosage: 100ML ONCE INTRAVENOUS
     Route: 042
     Dates: start: 20070412, end: 20070412

REACTIONS (1)
  - ANAPHYLACTOID REACTION [None]
